FAERS Safety Report 11930469 (Version 35)
Quarter: 2018Q2

REPORT INFORMATION
  Report Type: Report from Study
  Country: US (occurrence: US)
  Receive Date: 20160120
  Receipt Date: 20180619
  Transmission Date: 20180711
  Serious: Yes (Death, Life-Threatening, Hospitalization, Other)
  Sender: FDA-Public Use
  Company Number: US-ACTELION-A-NJ2015-127905

PATIENT
  Age: 69 Year
  Sex: Male
  Weight: 87.53 kg

DRUGS (17)
  1. VELETRI [Suspect]
     Active Substance: EPOPROSTENOL
     Dosage: 29.6 NG/KG, PER MIN
     Route: 042
  2. PROTAMINE [Concomitant]
     Active Substance: PROTAMINE
     Dosage: 40 MG, UNK
     Dates: start: 20160108
  3. HUMALOG [Concomitant]
     Active Substance: INSULIN LISPRO
     Dosage: UNK
     Route: 058
     Dates: start: 20160107
  4. VELETRI [Suspect]
     Active Substance: EPOPROSTENOL
     Dosage: 11 NG/KG, PER MIN
     Route: 042
     Dates: start: 20120110
  5. DESMOPRESSIN [Concomitant]
     Active Substance: DESMOPRESSIN
     Dosage: 30 MG, UNK
     Route: 042
     Dates: start: 20160109, end: 20160109
  6. FERROUS SULFATE. [Concomitant]
     Active Substance: FERROUS SULFATE
     Dosage: 325 MG, TID
     Route: 048
     Dates: start: 20111031
  7. VELETRI [Suspect]
     Active Substance: EPOPROSTENOL
     Indication: PULMONARY ARTERIAL HYPERTENSION
     Dosage: 51 NG/KG, PER MIN
     Route: 042
     Dates: start: 20120110
  8. OPSUMIT [Suspect]
     Active Substance: MACITENTAN
     Indication: PULMONARY ARTERIAL HYPERTENSION
     Dosage: 10 MG, QD
     Route: 048
     Dates: start: 20140528, end: 20180416
  9. REVATIO [Concomitant]
     Active Substance: SILDENAFIL CITRATE
  10. PERCOCET [Concomitant]
     Active Substance: ACETAMINOPHEN\OXYCODONE HYDROCHLORIDE
     Dosage: 1-2 TABLETS, PRN
     Route: 048
     Dates: start: 20131130
  11. FEBUXOSTAT. [Concomitant]
     Active Substance: FEBUXOSTAT
     Dosage: 80 MG, QD
     Route: 048
  12. MORPHINE [Concomitant]
     Active Substance: MORPHINE
     Dosage: 2 MG, PRN
     Route: 042
     Dates: start: 20160108
  13. SODIUM CHLORIDE. [Concomitant]
     Active Substance: SODIUM CHLORIDE
     Dosage: UNK
     Route: 042
     Dates: start: 20160108
  14. VASOPRESSIN. [Concomitant]
     Active Substance: VASOPRESSIN
     Dosage: 100 U, UNK
     Route: 042
     Dates: start: 20160109
  15. ATORVASTATIN [Concomitant]
     Active Substance: ATORVASTATIN
     Dosage: 40 MG, QD
     Route: 048
     Dates: start: 2014
  16. SERTRALINE [Concomitant]
     Active Substance: SERTRALINE HYDROCHLORIDE
     Dosage: 100 MG, QD
     Route: 048
     Dates: start: 20100818
  17. ONDANSETRON [Concomitant]
     Active Substance: ONDANSETRON
     Dosage: 4 MG, PRN
     Route: 042
     Dates: start: 20160105

REACTIONS (103)
  - Hypertension [Unknown]
  - Muscle atrophy [Unknown]
  - Diarrhoea [Recovered/Resolved]
  - Blood creatinine increased [Unknown]
  - Chills [Unknown]
  - Anaemia [Unknown]
  - Chest pain [Unknown]
  - Fluid overload [Not Recovered/Not Resolved]
  - Chronic obstructive pulmonary disease [Unknown]
  - Atrial flutter [Recovered/Resolved]
  - Blood pressure abnormal [Unknown]
  - Cellulitis [Recovered/Resolved]
  - Pain in extremity [Recovered/Resolved]
  - Pulmonary hypertension [Not Recovered/Not Resolved]
  - Nausea [Unknown]
  - Retching [Unknown]
  - Abdominal discomfort [Unknown]
  - Heart rate increased [Unknown]
  - Abdominal pain [Recovered/Resolved]
  - Liver function test abnormal [Recovered/Resolved]
  - Blood bilirubin increased [Recovered/Resolved]
  - Haemoglobin decreased [Recovered/Resolved]
  - Device related infection [Unknown]
  - Urine analysis abnormal [Recovered/Resolved]
  - Cervical vertebral fracture [Recovered/Resolved]
  - Facial bones fracture [Recovered/Resolved]
  - Clavicle fracture [Recovered/Resolved]
  - Oedema [Recovered/Resolved]
  - Incorrect drug administration rate [Unknown]
  - Feeling abnormal [Unknown]
  - Device infusion issue [Unknown]
  - Lacrimation increased [Not Recovered/Not Resolved]
  - Ischaemic hepatitis [Recovered/Resolved]
  - Aspartate aminotransferase increased [Recovered/Resolved]
  - Alanine aminotransferase increased [Recovered/Resolved]
  - Shock haemorrhagic [Recovered/Resolved]
  - Bacteraemia [Unknown]
  - Night sweats [Unknown]
  - Decreased appetite [Unknown]
  - Vitamin D deficiency [Not Recovered/Not Resolved]
  - Epistaxis [Recovered/Resolved]
  - Condition aggravated [Recovered/Resolved]
  - Cardiac failure congestive [Recovered/Resolved]
  - Nasopharyngitis [Recovered/Resolved]
  - Rash [Recovered/Resolved]
  - Cardiac index increased [Not Recovered/Not Resolved]
  - Nasal discomfort [Unknown]
  - Blood culture positive [Unknown]
  - Cough [Unknown]
  - Electrocardiogram abnormal [Recovered/Resolved]
  - Pulmonary mass [Not Recovered/Not Resolved]
  - Upper respiratory tract infection [Unknown]
  - Leukocytosis [Recovered/Resolved]
  - Transfusion [Recovered/Resolved]
  - Memory impairment [Unknown]
  - Renal failure [Fatal]
  - Retroperitoneal haemorrhage [Recovered/Resolved]
  - Acute kidney injury [Unknown]
  - Dehydration [Unknown]
  - Muscle tightness [Unknown]
  - Hyponatraemia [Recovered/Resolved]
  - Decubitus ulcer [Not Recovered/Not Resolved]
  - Atrial fibrillation [Recovered/Resolved]
  - Palpitations [Recovered/Resolved]
  - Breast mass [Not Recovered/Not Resolved]
  - Pneumonia aspiration [Recovered/Resolved]
  - Acute respiratory failure [Not Recovered/Not Resolved]
  - Oxygen consumption increased [Not Recovered/Not Resolved]
  - Dyspnoea [Not Recovered/Not Resolved]
  - Fall [Recovered/Resolved]
  - Head injury [Recovered/Resolved]
  - Vascular graft [Unknown]
  - Fluid retention [Unknown]
  - Wheezing [Not Recovered/Not Resolved]
  - Skin warm [Recovered/Resolved]
  - Oedema peripheral [Recovered/Resolved]
  - Cardiac output increased [Not Recovered/Not Resolved]
  - Myocardial infarction [Fatal]
  - Clostridium difficile infection [Recovered/Resolved]
  - Renal tubular necrosis [Unknown]
  - Vomiting [Unknown]
  - Peripheral swelling [Not Recovered/Not Resolved]
  - Hyperkalaemia [Recovered/Resolved]
  - Sinus disorder [Not Recovered/Not Resolved]
  - Hypotension [Recovered/Resolved]
  - Cardiac flutter [Unknown]
  - Oxygen therapy [Recovered/Resolved]
  - Hypoxia [Recovered/Resolved]
  - Haematoma [Recovered/Resolved]
  - Pulmonary arterial hypertension [Unknown]
  - Weight decreased [Unknown]
  - Erythema [Recovered/Resolved]
  - Fatigue [Not Recovered/Not Resolved]
  - Shock [Recovered/Resolved with Sequelae]
  - Gastric haemorrhage [Unknown]
  - Anuria [Unknown]
  - Sepsis [Unknown]
  - Thrombocytopenia [Unknown]
  - Urinary tract infection [Recovered/Resolved]
  - Pulmonary congestion [Recovered/Resolved]
  - Contusion [Recovered/Resolved]
  - Pulmonary arterial pressure increased [Not Recovered/Not Resolved]
  - Rhinorrhoea [Not Recovered/Not Resolved]

NARRATIVE: CASE EVENT DATE: 201405
